FAERS Safety Report 9487228 (Version 1)
Quarter: 2013Q3

REPORT INFORMATION
  Report Type: Spontaneous
  Country: US (occurrence: US)
  Receive Date: 20130829
  Receipt Date: 20130829
  Transmission Date: 20140515
  Serious: Yes (Hospitalization)
  Sender: FDA-Public Use
  Company Number: US-TEVA-428835USA

PATIENT
  Age: 82 Year
  Sex: Male

DRUGS (1)
  1. AZILECT [Suspect]
     Indication: PARKINSON^S DISEASE

REACTIONS (1)
  - Blood glucose decreased [Recovered/Resolved]
